FAERS Safety Report 9222417 (Version 2)
Quarter: 2013Q2

REPORT INFORMATION
  Report Type: Spontaneous
  Country: US (occurrence: US)
  Receive Date: 20130410
  Receipt Date: 20130514
  Transmission Date: 20140414
  Serious: Yes (Hospitalization, Other)
  Sender: FDA-Public Use
  Company Number: US-BAYER-2013-044259

PATIENT
  Age: 26 Year
  Sex: Female

DRUGS (9)
  1. YAZ [Suspect]
     Indication: MENORRHAGIA
     Dosage: UNK
     Dates: start: 2010, end: 2011
  2. YAZ [Suspect]
     Indication: DYSMENORRHOEA
  3. YAZ [Suspect]
     Indication: CONTRACEPTION
  4. OCELLA [Suspect]
     Dosage: UNK
     Dates: start: 2010, end: 2011
  5. YASMIN [Suspect]
     Dosage: UNK
     Dates: start: 2010, end: 2011
  6. PANTOPRAZOLE SODIUM [Concomitant]
     Route: 048
  7. DICYCLOMINE HCL [Concomitant]
  8. PREDNISONE [Concomitant]
  9. MILNACIPRAN HYDROCHLORIDE [Concomitant]

REACTIONS (11)
  - Pulmonary embolism [None]
  - Injury [None]
  - Thrombophlebitis superficial [None]
  - Axillary vein thrombosis [None]
  - Thrombophlebitis superficial [None]
  - Pain [None]
  - Emotional distress [None]
  - Abdominal pain [None]
  - General physical health deterioration [None]
  - Anxiety [None]
  - Pain [None]
